FAERS Safety Report 10429935 (Version 1)
Quarter: 2014Q3

REPORT INFORMATION
  Report Type: Spontaneous
  Country: US (occurrence: None)
  Receive Date: 20140902
  Receipt Date: 20140902
  Transmission Date: 20150326
  Serious: Yes (Other)
  Sender: FDA-Public Use
  Company Number: None

PATIENT
  Age: 24 Year
  Sex: Male
  Weight: 66.23 kg

DRUGS (1)
  1. AMPHETAMINE SALTS [Suspect]
     Active Substance: AMPHETAMINE ASPARTATE\AMPHETAMINE SULFATE\DEXTROAMPHETAMINE SACCHARATE\DEXTROAMPHETAMINE SULFATE
     Indication: ATTENTION DEFICIT/HYPERACTIVITY DISORDER
     Dosage: 1 TABLET, TWICE A DAY, ORALLY
     Route: 048
     Dates: start: 20140812, end: 20140831

REACTIONS (5)
  - Irritability [None]
  - Nausea [None]
  - Fatigue [None]
  - Product physical issue [None]
  - Dizziness [None]

NARRATIVE: CASE EVENT DATE: 20140812
